FAERS Safety Report 23567424 (Version 1)
Quarter: 2024Q1

REPORT INFORMATION
  Report Type: Spontaneous
  Country: US (occurrence: US)
  Receive Date: 20240226
  Receipt Date: 20240226
  Transmission Date: 20240409
  Serious: No
  Sender: FDA-Public Use
  Company Number: US-BAUSCH-BL-2024-003040

PATIENT
  Sex: Female

DRUGS (2)
  1. RETIN-A [Suspect]
     Active Substance: TRETINOIN
     Indication: Acne
     Dosage: STRENGTH: 0.01%, APPLIES IT EVERY NIGHT
     Route: 061
     Dates: start: 20240117
  2. RETIN-A [Suspect]
     Active Substance: TRETINOIN
     Indication: Skin wrinkling

REACTIONS (2)
  - Acne [Unknown]
  - Product dose omission issue [Unknown]

NARRATIVE: CASE EVENT DATE: 20240101
